FAERS Safety Report 17510330 (Version 1)
Quarter: 2020Q1

REPORT INFORMATION
  Report Type: Spontaneous
  Country: GB (occurrence: GB)
  Receive Date: 20200306
  Receipt Date: 20200306
  Transmission Date: 20200409
  Serious: Yes (Other)
  Sender: FDA-Public Use
  Company Number: GB-ELI_LILLY_AND_COMPANY-GB202002010912

PATIENT
  Sex: Female

DRUGS (1)
  1. FORSTEO 250UG/ML [Suspect]
     Active Substance: TERIPARATIDE
     Indication: PRODUCT USED FOR UNKNOWN INDICATION
     Dosage: UNK UNK, UNKNOWN
     Route: 065
     Dates: start: 2018, end: 2019

REACTIONS (6)
  - Feeling abnormal [Unknown]
  - Fall [Unknown]
  - Spinal compression fracture [Unknown]
  - Lethargy [Unknown]
  - Brain neoplasm benign [Unknown]
  - Pain [Unknown]
